FAERS Safety Report 25913908 (Version 3)
Quarter: 2025Q4

REPORT INFORMATION
  Report Type: Report from Study
  Country: US (occurrence: US)
  Receive Date: 20251013
  Receipt Date: 20251118
  Transmission Date: 20260118
  Serious: No
  Sender: MALLINCKRODT
  Company Number: US-MALLINCKRODT-MNK202506323

PATIENT
  Age: 78 Year
  Sex: Female

DRUGS (2)
  1. CORTICOTROPIN [Suspect]
     Active Substance: CORTICOTROPIN
     Indication: Pulmonary sarcoidosis
     Dosage: 40 UNITS
     Route: 058
  2. DUPIXENT [Concomitant]
     Active Substance: DUPILUMAB
     Dosage: UNKNOWN

REACTIONS (4)
  - Psoriasis [Not Recovered/Not Resolved]
  - Glucose tolerance impaired [Unknown]
  - Dizziness [Unknown]
  - Product dose omission issue [Unknown]
